FAERS Safety Report 8529397-8 (Version None)
Quarter: 2012Q2

REPORT INFORMATION
  Report Type: 
  Country: None (occurrence: None)
  Receive Date: 20120409
  Receipt Date: 20110601
  Transmission Date: 20120825
  Serious: Yes (Other)
  Sender: FDA-Public Use
  Company Number: 2011-246

PATIENT
  Age: 18 Year
  Sex: Male

DRUGS (4)
  1. ZYPRE( (OLANZAPINE) [Concomitant]
  2. FAZACLO ODT [Suspect]
     Indication: SCHIZOAFFECTIVE DISORDER
     Dosage: 25-500 MG QD, ORAL
     Route: 048
     Dates: start: 20110413, end: 20110426
  3. PRILOSEO /00661201/ (OMEPRAZOLE) [Concomitant]
  4. COLACE (DOCUSATE SODIUM) [Concomitant]

REACTIONS (1)
  - MYOCARDITIS [None]
